FAERS Safety Report 9612759 (Version 2)
Quarter: 2013Q4

REPORT INFORMATION
  Report Type: Report from Study
  Country: JP (occurrence: JP)
  Receive Date: 20131010
  Receipt Date: 20131010
  Transmission Date: 20140711
  Serious: Yes (Hospitalization, Other)
  Sender: FDA-Public Use
  Company Number: JP-TAKEDA-TCI2012A03349

PATIENT
  Age: 69 Year
  Sex: Female
  Weight: 92 kg

DRUGS (12)
  1. TAK-438 [Suspect]
     Indication: PROPHYLAXIS AGAINST GASTROINTESTINAL ULCER
     Route: 048
     Dates: start: 20120516, end: 20120622
  2. MOHRUS TAPE [Concomitant]
     Indication: OSTEOARTHRITIS
     Route: 062
  3. MOHRUS TAPE L [Concomitant]
     Route: 062
  4. VENAPASTA [Concomitant]
     Indication: PRURITUS
     Route: 062
  5. VENAPASTA [Concomitant]
     Indication: PRURITUS
     Route: 062
  6. DIOVAN [Concomitant]
     Indication: HYPERTENSION
     Route: 048
  7. DIOVAN [Concomitant]
     Route: 048
  8. VESICARE [Concomitant]
     Indication: HYPERTONIC BLADDER
     Route: 048
     Dates: start: 20120516
  9. VESICARE [Concomitant]
     Indication: HYPERTONIC BLADDER
  10. HYPEN                              /00613801/ [Concomitant]
     Indication: OSTEOARTHRITIS
     Route: 048
  11. HYPEN                              /00613801/ [Concomitant]
     Route: 048
  12. TAKEPRON CAPSULES 30 [Suspect]
     Route: 065
     Dates: start: 20120516, end: 20120622

REACTIONS (1)
  - Cerebral haemorrhage [Recovered/Resolved]
